FAERS Safety Report 8220875-8 (Version None)
Quarter: 2012Q1

REPORT INFORMATION
  Report Type: 
  Country: None (occurrence: None)
  Receive Date: 20120320
  Receipt Date: 20120313
  Transmission Date: 20120608
  Serious: Yes (Other)
  Sender: FDA-Public Use
  Company Number: JP-B.I. PHARMACEUTICALS,INC./RIDGEFIELD-2012-BP-04351YA

PATIENT
  Age: 64 Year
  Sex: Male

DRUGS (1)
  1. TAMSULOSIN HCL [Suspect]
     Dosage: 0.2 MG
     Route: 048
     Dates: start: 20120104, end: 20120217

REACTIONS (1)
  - HEPATIC FUNCTION ABNORMAL [None]
